FAERS Safety Report 5477646-5 (Version None)
Quarter: 2007Q4

REPORT INFORMATION
  Report Type: 
  Country: None (occurrence: None)
  Receive Date: 20071002
  Receipt Date: 20070731
  Transmission Date: 20080405
  Serious: Yes (Hospitalization)
  Sender: FDA-Public Use
  Company Number: 2007RR-09626

PATIENT
  Age: 45 Year
  Sex: Male

DRUGS (4)
  1. FLOXACILLIN SODIUM [Suspect]
     Dosage: INTRAVENOUS
     Route: 042
  2. RANITIDINE                    (RANITIDINE) UNKNOWN [Suspect]
     Dosage: INTRAVENOUS
     Route: 042
  3. CIPROFLOXACIN [Concomitant]
  4. HYDROCORTISONE [Concomitant]

REACTIONS (1)
  - RHABDOMYOLYSIS [None]
